FAERS Safety Report 9353257 (Version 2)
Quarter: 2013Q3

REPORT INFORMATION
  Report Type: Spontaneous
  Country: US (occurrence: US)
  Receive Date: 20130618
  Receipt Date: 20130729
  Transmission Date: 20140515
  Serious: No
  Sender: FDA-Public Use
  Company Number: US-PFIZER INC-2013179872

PATIENT
  Age: 65 Year
  Sex: Male
  Weight: 86.17 kg

DRUGS (5)
  1. XELJANZ [Suspect]
     Indication: RHEUMATOID ARTHRITIS
     Dosage: 5 MG, 2X/DAY
     Route: 048
     Dates: start: 20130411, end: 20130430
  2. LISINOPRIL [Concomitant]
     Dosage: 5 MG, UNK
     Route: 048
  3. ALEVE [Concomitant]
     Dosage: 220 MG, UNK
     Route: 048
  4. ASPIR-LOW [Concomitant]
     Dosage: 81 MG, UNK
     Route: 048
  5. SIMVASTATIN [Concomitant]
     Dosage: UNK

REACTIONS (3)
  - Nausea [Unknown]
  - Pyrexia [Recovered/Resolved]
  - Myalgia [Recovered/Resolved]
